FAERS Safety Report 9462320 (Version 1)
Quarter: 2013Q3

REPORT INFORMATION
  Report Type: Spontaneous
  Country: DK (occurrence: DK)
  Receive Date: 20130816
  Receipt Date: 20130816
  Transmission Date: 20140515
  Serious: Yes (Hospitalization)
  Sender: FDA-Public Use
  Company Number: DK-TEVA-424174ISR

PATIENT
  Age: 86 Year
  Sex: Female

DRUGS (3)
  1. ENALAPRI [Suspect]
     Indication: HYPERTENSION
     Dosage: 1 DOSAGE FORMS DAILY; DOSAGE: 1 TABLET, ONCE DAILY. STRENGTH: 20+12,5 MG
     Route: 048
     Dates: end: 20130127
  2. QUININE [Concomitant]
     Indication: MUSCLE SPASMS
     Dosage: STRENGTH: 100 MG
     Route: 048
  3. ANGEMIN [Concomitant]
     Indication: HORMONE THERAPY
     Dosage: STRENGTH: 2+1 MG
     Route: 048

REACTIONS (4)
  - Angioedema [Recovered/Resolved]
  - Swollen tongue [Recovered/Resolved]
  - Depressed level of consciousness [Recovered/Resolved]
  - Tachycardia [Recovered/Resolved]
